FAERS Safety Report 7755201-1 (Version None)
Quarter: 2011Q3

REPORT INFORMATION
  Report Type: 
  Country: None (occurrence: None)
  Receive Date: 20110916
  Receipt Date: 20110803
  Transmission Date: 20111222
  Serious: No
  Sender: FDA-Public Use
  Company Number: US-GLAXOSMITHKLINE-A0939557A

PATIENT
  Age: 75 Year
  Sex: Female
  Weight: 45.9 kg

DRUGS (5)
  1. SOTALOL HCL [Concomitant]
  2. PREDNISONE [Concomitant]
  3. FISH OIL [Concomitant]
  4. LIPITOR [Concomitant]
  5. PROMACTA [Suspect]
     Indication: PRODUCT USED FOR UNKNOWN INDICATION
     Dosage: 75MG PER DAY
     Route: 048

REACTIONS (3)
  - PAIN IN EXTREMITY [None]
  - HYPOAESTHESIA [None]
  - GAIT DISTURBANCE [None]
